FAERS Safety Report 9256962 (Version 1)
Quarter: 2013Q2

REPORT INFORMATION
  Report Type: Spontaneous
  Country: IT (occurrence: None)
  Receive Date: 20130423
  Receipt Date: 20130423
  Transmission Date: 20140414
  Serious: Yes (Other)
  Sender: FDA-Public Use
  Company Number: GER/ITL/13/0029037

PATIENT
  Age: 70 Year
  Sex: Male
  Weight: 88 kg

DRUGS (7)
  1. CLOPIDOGREL [Suspect]
     Indication: MYOCARDIAL ISCHAEMIA
     Route: 048
     Dates: start: 20130108, end: 20130113
  2. ALLOPURINOL (ALLOPURINOL SODIUM) [Concomitant]
  3. FERRO-GRAD 105 MG (FERROUS SULFATE) [Concomitant]
  4. TORVAST 20 MG (ATORVASTATIN CALCIUM) [Concomitant]
  5. CORDARONE 200 MG (AMIODARONE HYDROCHLORIDE) [Concomitant]
  6. LASIX 25 MG (FUROSEMIDE) [Concomitant]
  7. NORVASC 10 MG (AMLODIPINE BESILATE) [Concomitant]

REACTIONS (1)
  - Tongue oedema [None]
